FAERS Safety Report 9337938 (Version 4)
Quarter: 2013Q4

REPORT INFORMATION
  Report Type: Spontaneous
  Country: JP (occurrence: JP)
  Receive Date: 20130609
  Receipt Date: 20131226
  Transmission Date: 20140711
  Serious: Yes (Death, Hospitalization, Other)
  Sender: FDA-Public Use
  Company Number: PHHY2013JP058032

PATIENT
  Age: 84 Year
  Sex: Female

DRUGS (5)
  1. TEGRETOL [Suspect]
     Indication: PAIN IN EXTREMITY
     Dosage: 100 MG, DAILY
     Route: 048
     Dates: end: 20130603
  2. PLETAAL [Concomitant]
     Indication: PERIPHERAL ARTERIAL OCCLUSIVE DISEASE
     Dosage: 100 MG, UNK
     Route: 048
     Dates: end: 20131210
  3. ALFAROL [Concomitant]
     Indication: OSTEOPOROSIS
     Dosage: 1 UG, UNK
     Route: 048
     Dates: end: 20131210
  4. OLMETEC [Concomitant]
     Indication: HYPERTENSION
     Dosage: 20 MG, UNK
     Route: 048
     Dates: end: 20131210
  5. MOBIC [Concomitant]
     Indication: BACK PAIN
     Dosage: 10 MG, UNK
     Route: 048
     Dates: end: 20131210

REACTIONS (6)
  - Cellulitis [Fatal]
  - Sepsis [Fatal]
  - Protein-losing gastroenteropathy [Unknown]
  - Hypoalbuminaemia [Not Recovered/Not Resolved]
  - Oedema [Recovering/Resolving]
  - Ascites [Not Recovered/Not Resolved]
